FAERS Safety Report 7468517-3 (Version None)
Quarter: 2011Q2

REPORT INFORMATION
  Report Type: 
  Country: None (occurrence: None)
  Receive Date: 20110509
  Receipt Date: 20110505
  Transmission Date: 20111010
  Serious: Yes (Other)
  Sender: FDA-Public Use
  Company Number: US-RB-026713-11

PATIENT
  Age: 25 Year
  Sex: Female

DRUGS (1)
  1. SUBOXONE [Suspect]
     Indication: PRODUCT USED FOR UNKNOWN INDICATION
     Dosage: UNKNOWN DOSING INFORMATION
     Route: 065

REACTIONS (10)
  - HYPERTENSION [None]
  - HYPONATRAEMIA [None]
  - CONVULSION [None]
  - TONGUE DISCOLOURATION [None]
  - PANIC DISORDER [None]
  - HEART RATE IRREGULAR [None]
  - CONDITION AGGRAVATED [None]
  - DEPRESSION [None]
  - HYPOKALAEMIA [None]
  - ANXIETY [None]
